FAERS Safety Report 8018716-7 (Version None)
Quarter: 2012Q1

REPORT INFORMATION
  Report Type: 
  Country: None (occurrence: None)
  Receive Date: 20120103
  Receipt Date: 20120103
  Transmission Date: 20120608
  Serious: Yes (Life-Threatening, Hospitalization, Other)
  Sender: FDA-Public Use
  Company Number: None

PATIENT
  Age: 54 Year
  Sex: Female
  Weight: 45.359 kg

DRUGS (5)
  1. SINEMET [Concomitant]
     Route: 048
  2. ZOLOFT [Concomitant]
     Route: 048
  3. PRIMIDONE [Concomitant]
     Route: 048
  4. SEROQUEL [Suspect]
     Indication: INSOMNIA
     Dosage: 50 MG
     Route: 048
     Dates: start: 20100101, end: 20111201
  5. PAXIL [Concomitant]
     Route: 048

REACTIONS (5)
  - SUICIDE ATTEMPT [None]
  - CATATONIA [None]
  - DEPRESSION [None]
  - SUICIDAL IDEATION [None]
  - HYPOMANIA [None]
